FAERS Safety Report 20863411 (Version 1)
Quarter: 2022Q2

REPORT INFORMATION
  Report Type: Report from Study
  Country: CO (occurrence: CO)
  Receive Date: 20220523
  Receipt Date: 20220523
  Transmission Date: 20220721
  Serious: Yes (Other)
  Sender: FDA-Public Use
  Company Number: CO-NOVARTISPH-NVSC2022CO117710

PATIENT
  Sex: Female
  Weight: 80 kg

DRUGS (1)
  1. LOSARTAN [Suspect]
     Active Substance: LOSARTAN
     Indication: Hypertension
     Dosage: UNK, STARTED 10 YEARS AGO
     Route: 048

REACTIONS (5)
  - Breast cancer metastatic [Recovering/Resolving]
  - Metastases to bone [Recovering/Resolving]
  - Metastases to lung [Recovering/Resolving]
  - Neoplasm [Recovered/Resolved]
  - Dyspnoea [Recovered/Resolved]

NARRATIVE: CASE EVENT DATE: 20190101
